FAERS Safety Report 22218344 (Version 3)
Quarter: 2023Q2

REPORT INFORMATION
  Report Type: Report from Study
  Country: CN (occurrence: CN)
  Receive Date: 20230417
  Receipt Date: 20230516
  Transmission Date: 20230722
  Serious: Yes (Death, Hospitalization)
  Sender: FDA-Public Use
  Company Number: CN-ARGNEX-2023-ARGX-CN001152

PATIENT
  Age: 59 Year
  Sex: Male

DRUGS (21)
  1. EFGARTIGIMOD ALFA [Suspect]
     Active Substance: EFGARTIGIMOD ALFA
     Indication: Pemphigus
     Dosage: 2000 MG, 1/WEEK
     Route: 058
     Dates: start: 20220721
  2. EFGARTIGIMOD ALFA [Suspect]
     Active Substance: EFGARTIGIMOD ALFA
     Dosage: 1000 MG, 1/WEEK
     Route: 058
     Dates: start: 20230209, end: 20230221
  3. HYALURONIDASE (HUMAN RECOMBINANT) [Suspect]
     Active Substance: HYALURONIDASE (HUMAN RECOMBINANT)
     Indication: Pemphigus
     Dosage: 2000 MG, 1/WEEK
     Route: 058
     Dates: start: 20220721
  4. HYALURONIDASE (HUMAN RECOMBINANT) [Suspect]
     Active Substance: HYALURONIDASE (HUMAN RECOMBINANT)
     Dosage: 1000 MG, 1/WEEK
     Route: 058
     Dates: start: 20230209, end: 20230221
  5. PREDNISONE [Suspect]
     Active Substance: PREDNISONE
     Indication: Pemphigus
     Dosage: 95 MG
     Route: 048
     Dates: start: 20220721
  6. PREDNISOLONE [Suspect]
     Active Substance: PREDNISOLONE
     Indication: Pemphigus
     Dosage: 68 MG
     Route: 048
     Dates: start: 20230408
  7. POTASSIUM CHLORIDE [Concomitant]
     Active Substance: POTASSIUM CHLORIDE
     Indication: Drug therapy
     Dosage: 1 G, BID
     Route: 048
     Dates: start: 20230308, end: 20230408
  8. CALCIUM CARBONATE [Concomitant]
     Active Substance: CALCIUM CARBONATE
     Indication: Drug therapy
     Dosage: 0.6 G, DAILY
     Route: 048
     Dates: start: 20230308, end: 20230408
  9. HYDROTALCITE [Concomitant]
     Active Substance: HYDROTALCITE
     Indication: Drug therapy
     Dosage: 1 DF, TID
     Route: 048
     Dates: start: 20220506, end: 20230408
  10. PHOSPHOLIPID [Concomitant]
     Active Substance: PHOSPHOLIPID
     Indication: Blood lactate dehydrogenase increased
     Dosage: 2 DF, TID
     Route: 048
     Dates: start: 20220816, end: 20230408
  11. AMLODIPINE BESYLATE [Concomitant]
     Active Substance: AMLODIPINE BESYLATE
     Indication: Hypertension
     Dosage: 5 MG, DAILY
     Route: 048
     Dates: start: 20220913, end: 20230408
  12. BETAMETHASONE [Concomitant]
     Active Substance: BETAMETHASONE
     Indication: Drug therapy
     Dosage: 1 ML, BID
     Dates: start: 20221115, end: 20230408
  13. BIFONAZOLE [Concomitant]
     Active Substance: BIFONAZOLE
     Indication: Drug therapy
     Dosage: 2 G, DAILY
     Dates: start: 20221102, end: 20230408
  14. POTASSIUM PERMANGANATE [Concomitant]
     Active Substance: POTASSIUM PERMANGANATE
     Indication: Drug therapy
     Dosage: 100 MG, DAILY
     Dates: start: 20230103, end: 20230408
  15. ERYTHROMYCIN [Concomitant]
     Active Substance: ERYTHROMYCIN
     Indication: Drug therapy
     Dosage: 3 G, BID
     Dates: start: 20230103, end: 20230408
  16. HALOMETASONE [Concomitant]
     Active Substance: HALOMETASONE
     Indication: Drug therapy
     Dosage: 3 G, BID
     Dates: start: 20230103, end: 20230408
  17. AZATHIOPRINE [Concomitant]
     Active Substance: AZATHIOPRINE
     Indication: Drug therapy
     Dosage: 50 MG, BID
     Route: 048
     Dates: start: 20230227, end: 20230408
  18. ATORVASTATIN CALCIUM [Concomitant]
     Active Substance: ATORVASTATIN CALCIUM
     Indication: Drug therapy
     Dosage: 10 MG, DAILY
     Route: 048
     Dates: start: 20230321, end: 20230408
  19. OMEPRAZOLE [Concomitant]
     Active Substance: OMEPRAZOLE
     Indication: Drug therapy
     Dosage: 20 MG, DAILY
     Route: 048
     Dates: start: 20230330, end: 20230408
  20. ACARBOSE [Concomitant]
     Active Substance: ACARBOSE
     Indication: Diabetes mellitus
     Dosage: 50 MG, TID
     Route: 048
     Dates: start: 20230225, end: 20230408
  21. METHYLPREDNISOLONE [Concomitant]
     Active Substance: METHYLPREDNISOLONE
     Indication: Drug therapy
     Dosage: 68 MG, DAILY
     Route: 048
     Dates: start: 20230331, end: 20230408

REACTIONS (3)
  - Sepsis [Fatal]
  - Shock haemorrhagic [Fatal]
  - Skin infection [Not Recovered/Not Resolved]

NARRATIVE: CASE EVENT DATE: 20230404
